FAERS Safety Report 6324516-6 (Version None)
Quarter: 2009Q3

REPORT INFORMATION
  Report Type: 
  Country: None (occurrence: None)
  Receive Date: 20090824
  Receipt Date: 20090819
  Transmission Date: 20100115
  Serious: Yes (Other)
  Sender: FDA-Public Use
  Company Number: US-JNJFOC-20090806625

PATIENT
  Sex: Male
  Weight: 104.33 kg

DRUGS (6)
  1. TAPENTADOL HYDROCHLORIDE [Suspect]
     Indication: BACK PAIN
     Route: 048
     Dates: start: 20090713, end: 20090817
  2. TYLENOL W/ CODEINE [Concomitant]
     Indication: BACK PAIN
     Route: 065
  3. DIAZEPAM [Concomitant]
  4. OXYCODONE [Concomitant]
     Indication: BACK PAIN
     Route: 048
  5. MORPHINE [Concomitant]
     Indication: BACK PAIN
     Route: 048
  6. AMOXICILLIN [Concomitant]
     Indication: SWELLING FACE

REACTIONS (4)
  - DENTAL CARIES [None]
  - LIVER DISORDER [None]
  - SWELLING FACE [None]
  - THERAPY CESSATION [None]
